FAERS Safety Report 26034395 (Version 3)
Quarter: 2025Q4

REPORT INFORMATION
  Report Type: Spontaneous
  Country: TR (occurrence: TR)
  Receive Date: 20251112
  Receipt Date: 20251114
  Transmission Date: 20260117
  Serious: Yes (Hospitalization)
  Sender: JOHNSON AND JOHNSON
  Company Number: TR-JNJFOC-20250919871

PATIENT
  Age: 68 Year
  Sex: Female

DRUGS (6)
  1. RISPERDAL [Suspect]
     Active Substance: RISPERIDONE
     Indication: Psychotic behaviour
     Dosage: APPROXIMATELY 2 TO 3 WEEKS
     Route: 048
     Dates: start: 202002, end: 202003
  2. RISPERDAL [Suspect]
     Active Substance: RISPERIDONE
     Dosage: 2 ? 5-10 DROPS AS NEEDED (APPROX. 2 ? 0.5-1 MG/DAY)
     Route: 065
     Dates: start: 2022, end: 2022
  3. RISPERDAL [Suspect]
     Active Substance: RISPERIDONE
     Route: 065
  4. HALOPERIDOL [Suspect]
     Active Substance: HALOPERIDOL
     Indication: Neuropsychological symptoms
     Dosage: 2 ? 5-10 DROPS AS NEEDED (APPROX. 2 ? 0.5-1 MG/DAY)
     Route: 048
     Dates: start: 2022, end: 2022
  5. VENLAFAXINE HYDROCHLORIDE [Concomitant]
     Active Substance: VENLAFAXINE HYDROCHLORIDE
     Indication: Product used for unknown indication
     Route: 065
  6. Diazem [Concomitant]
     Indication: Product used for unknown indication
     Route: 065

REACTIONS (2)
  - Extrapyramidal disorder [Recovered/Resolved]
  - Neuropsychological symptoms [Recovered/Resolved]

NARRATIVE: CASE EVENT DATE: 20200201
